FAERS Safety Report 9991603 (Version 2)
Quarter: 2014Q1

REPORT INFORMATION
  Report Type: Spontaneous
  Country: US (occurrence: US)
  Receive Date: 20140310
  Receipt Date: 20140318
  Transmission Date: 20141002
  Serious: Yes (Other)
  Sender: FDA-Public Use
  Company Number: US-BAYER-2014-032433

PATIENT
  Age: 43 Year
  Sex: Female
  Weight: 73.02 kg

DRUGS (4)
  1. MIRENA [Suspect]
     Indication: CONTRACEPTION
     Dosage: 20 MCG/24HR, CONT
     Route: 015
     Dates: start: 20091020, end: 20110609
  2. PREMARIN [Concomitant]
     Dosage: 0.625 MG, UNK
  3. DILTIAZEM [Concomitant]
     Indication: CARDIAC DISORDER
     Dosage: UNK
     Route: 048
     Dates: start: 2004
  4. CRESTOR [Concomitant]
     Dosage: UNK
     Route: 048
     Dates: start: 2004

REACTIONS (8)
  - Device expulsion [None]
  - Infection [None]
  - Abdominal pain [None]
  - Uterine perforation [None]
  - Medical device discomfort [None]
  - Pain [None]
  - Injury [None]
  - Emotional distress [None]
